FAERS Safety Report 16414454 (Version 1)
Quarter: 2019Q3

REPORT INFORMATION
  Report Type: Spontaneous
  Country: AU (occurrence: AU)
  Receive Date: 20190610
  Receipt Date: 20190610
  Transmission Date: 20191004
  Serious: Yes (Life-Threatening, Hospitalization, Disabling)
  Sender: FDA-Public Use
  Company Number: None

PATIENT
  Age: 29 Year
  Sex: Female
  Weight: 60 kg

DRUGS (1)
  1. CIPROFLOXACIN. [Suspect]
     Active Substance: CIPROFLOXACIN
     Indication: URINARY TRACT INFECTION
     Dosage: ?          QUANTITY:1 TABLET(S);?

REACTIONS (8)
  - Back pain [None]
  - Pain in extremity [None]
  - Diarrhoea [None]
  - Insomnia [None]
  - Vitreous floaters [None]
  - Weight decreased [None]
  - Amnesia [None]
  - Panic attack [None]

NARRATIVE: CASE EVENT DATE: 20150305
